FAERS Safety Report 21196191 (Version 4)
Quarter: 2022Q3

REPORT INFORMATION
  Report Type: Spontaneous
  Country: US (occurrence: US)
  Receive Date: 20220810
  Receipt Date: 20220922
  Transmission Date: 20221027
  Serious: No
  Sender: FDA-Public Use
  Company Number: US-PFIZER INC-202201049802

PATIENT
  Age: 66 Year
  Sex: Female

DRUGS (2)
  1. IBRANCE [Suspect]
     Active Substance: PALBOCICLIB
     Dosage: 75 MG, CYCLIC (TAKE 1 TABLET FOR 3 WEEKS ON, 1 WEEK OFF)
     Dates: start: 20220722, end: 2022
  2. IBRANCE [Suspect]
     Active Substance: PALBOCICLIB
     Dosage: 75 MG, CYCLIC (TAKE 1 TABLET FOR 3 WEEKS ON, 1 WEEK OFF)
     Dates: start: 20220827

REACTIONS (14)
  - Weight decreased [Unknown]
  - Abdominal pain [Unknown]
  - Herpes zoster [Unknown]
  - Fatigue [Unknown]
  - Stomatitis [Recovering/Resolving]
  - Paraesthesia [Unknown]
  - Pain [Unknown]
  - Pruritus [Unknown]
  - Fluid retention [Unknown]
  - Neck pain [Unknown]
  - Headache [Unknown]
  - Burning sensation [Unknown]
  - Feeling cold [Unknown]
  - Product dose omission issue [Unknown]

NARRATIVE: CASE EVENT DATE: 20220101
